FAERS Safety Report 7921010-3 (Version None)
Quarter: 2011Q4

REPORT INFORMATION
  Report Type: 
  Country: None (occurrence: None)
  Receive Date: 20111117
  Receipt Date: 20111104
  Transmission Date: 20120403
  Serious: Yes (Hospitalization, Other)
  Sender: FDA-Public Use
  Company Number: US-BAYER-201028335NA

PATIENT
  Age: 28 Year
  Sex: Female
  Weight: 95.238 kg

DRUGS (4)
  1. DIFFERIN [Concomitant]
     Dosage: 0.1 %, UNK
     Route: 061
     Dates: start: 20061109
  2. METHOCARBAMOL [Concomitant]
     Indication: PRODUCT USED FOR UNKNOWN INDICATION
     Dosage: 500 MG, UNK
  3. YASMIN [Suspect]
     Indication: PREMENSTRUAL SYNDROME
     Dosage: UNK UNK, UNK
     Route: 048
     Dates: start: 20070120, end: 20070219
  4. PENICILLIN V POTASSIUM [Concomitant]
     Indication: PRODUCT USED FOR UNKNOWN INDICATION
     Dosage: 1 DF, QID
     Route: 048
     Dates: start: 20061212

REACTIONS (7)
  - CEREBROVASCULAR ACCIDENT [None]
  - DEPRESSION [None]
  - MENTAL DISORDER [None]
  - PULMONARY EMBOLISM [None]
  - INSOMNIA [None]
  - DEEP VEIN THROMBOSIS [None]
  - ANXIETY [None]
